FAERS Safety Report 6517253-6 (Version None)
Quarter: 2009Q4

REPORT INFORMATION
  Report Type: 
  Country: None (occurrence: None)
  Receive Date: 20091217
  Receipt Date: 20090909
  Transmission Date: 20100525
  Serious: Yes (Hospitalization, Other)
  Sender: FDA-Public Use
  Company Number: 87114

PATIENT
  Sex: Female

DRUGS (4)
  1. CISPLATIN [Suspect]
     Indication: SMALL CELL LUNG CANCER STAGE UNSPECIFIED
     Dosage: 3 TIMES A WEEK FOR THREE WEEKS
     Dates: start: 20080101, end: 20080501
  2. PACLITAXEL [Suspect]
     Indication: SMALL CELL LUNG CANCER STAGE UNSPECIFIED
     Dosage: ONCE A WEEK FOR THREE WEEKS, THEN ONE WEEK
     Dates: start: 20090101, end: 20090401
  3. PACLITAXEL [Suspect]
     Indication: SMALL CELL LUNG CANCER STAGE UNSPECIFIED
     Dosage: ONCE A WEEK FOR THREE WEEKS, THEN ONE WEEK
     Dates: start: 20090826, end: 20090902
  4. PACLITAXEL [Suspect]
     Indication: SMALL CELL LUNG CANCER STAGE UNSPECIFIED
     Dosage: ONCE A WEEK FOR THREE WEEKS, THEN ONE WEEK
     Dates: start: 20090701

REACTIONS (3)
  - BURNING SENSATION [None]
  - LABORATORY TEST ABNORMAL [None]
  - PAIN [None]
